FAERS Safety Report 4516563-1 (Version None)
Quarter: 2004Q4

REPORT INFORMATION
  Report Type: 
  Country: None (occurrence: None)
  Receive Date: 20041202
  Receipt Date: 20041130
  Transmission Date: 20050328
  Serious: Yes (Hospitalization)
  Sender: FDA-Public Use
  Company Number: IT-ROCHE-387535

PATIENT
  Age: 83 Year
  Sex: Female

DRUGS (5)
  1. TICLID [Suspect]
     Indication: PROPHYLAXIS
     Route: 048
     Dates: start: 20041021, end: 20041030
  2. ZYLORIC [Suspect]
     Route: 048
     Dates: start: 20041021, end: 20041030
  3. LOSAPREX [Concomitant]
     Indication: ESSENTIAL HYPERTENSION
     Route: 048
  4. PANTORC [Concomitant]
     Indication: GASTRITIS
     Route: 048
  5. ACTRAPID [Concomitant]
     Indication: DIABETES MELLITUS
     Route: 051

REACTIONS (7)
  - BLOOD CULTURE POSITIVE [None]
  - LEUKOPENIA [None]
  - PRURITUS [None]
  - PRURITUS GENERALISED [None]
  - SEPSIS [None]
  - STAPHYLOCOCCAL INFECTION [None]
  - URTICARIA [None]
